FAERS Safety Report 13770876 (Version 2)
Quarter: 2017Q3

REPORT INFORMATION
  Report Type: Spontaneous
  Country: JP (occurrence: JP)
  Receive Date: 20170720
  Receipt Date: 20170913
  Transmission Date: 20171127
  Serious: Yes (Hospitalization)
  Sender: FDA-Public Use
  Company Number: JP-ROCHE-1965577

PATIENT
  Age: 58 Year
  Sex: Female
  Weight: 53 kg

DRUGS (3)
  1. TAXOL [Concomitant]
     Active Substance: PACLITAXEL
     Indication: OVARIAN CANCER
     Dosage: ONCE DOSAGE: 95-125MG
     Route: 041
     Dates: start: 20170116, end: 20170619
  2. CARBOPLATIN. [Concomitant]
     Active Substance: CARBOPLATIN
     Indication: OVARIAN CANCER
     Dosage: ONCE DOSAGE: 220-315 (UNIT UNCERTAINTY)
     Route: 041
     Dates: start: 20170116, end: 20170619
  3. AVASTIN [Suspect]
     Active Substance: BEVACIZUMAB
     Indication: OVARIAN CANCER
     Dosage: ON 19/JUN/2017, MOST RECENT DOSE OF BEVACIZUMAB ?TREATMENT LINE: 1ST LINE
     Route: 041
     Dates: start: 20170206

REACTIONS (1)
  - Colitis ischaemic [Recovered/Resolved]

NARRATIVE: CASE EVENT DATE: 20170705
